FAERS Safety Report 6905113-8 (Version None)
Quarter: 2010Q3

REPORT INFORMATION
  Report Type: 
  Country: None (occurrence: None)
  Receive Date: 20100804
  Receipt Date: 20090923
  Transmission Date: 20110219
  Serious: Yes (Other)
  Sender: FDA-Public Use
  Company Number: US-PFIZER INC-2009232924

PATIENT
  Age: 66 Year
  Sex: Female

DRUGS (3)
  1. LYRICA [Suspect]
     Indication: SPINAL FUSION SURGERY
     Dosage: 50 MG, 2X/DAY
     Route: 048
     Dates: start: 20090603, end: 20090604
  2. LYRICA [Suspect]
     Indication: NEURALGIA
  3. SCOPOLAMINE [Suspect]
     Indication: NAUSEA
     Dosage: UNK
     Route: 062

REACTIONS (6)
  - DELIRIUM [None]
  - HEADACHE [None]
  - NAUSEA [None]
  - SEDATION [None]
  - SOMNOLENCE [None]
  - TREMOR [None]
